FAERS Safety Report 17732410 (Version 1)
Quarter: 2020Q2

REPORT INFORMATION
  Report Type: Spontaneous
  Country: US (occurrence: US)
  Receive Date: 20200501
  Receipt Date: 20200501
  Transmission Date: 20200714
  Serious: Yes (Hospitalization)
  Sender: FDA-Public Use
  Company Number: US-ROCHE-2588775

PATIENT
  Sex: Male

DRUGS (5)
  1. OFEV [Interacting]
     Active Substance: NINTEDANIB
     Indication: IDIOPATHIC PULMONARY FIBROSIS
     Route: 048
     Dates: start: 20180621, end: 20180702
  2. ESBRIET [Suspect]
     Active Substance: PIRFENIDONE
     Indication: PRODUCT USED FOR UNKNOWN INDICATION
     Route: 048
  3. OFEV [Interacting]
     Active Substance: NINTEDANIB
     Route: 048
     Dates: start: 20180726
  4. PREDNISONE. [Interacting]
     Active Substance: PREDNISONE
     Indication: PRODUCT USED FOR UNKNOWN INDICATION
     Route: 065
  5. OFEV [Interacting]
     Active Substance: NINTEDANIB
     Route: 048

REACTIONS (20)
  - Feeling abnormal [Unknown]
  - Quality of life decreased [Unknown]
  - Weight decreased [Recovered/Resolved]
  - Drug interaction [Recovered/Resolved]
  - Swelling [Recovered/Resolved]
  - Nausea [Not Recovered/Not Resolved]
  - Diarrhoea haemorrhagic [Unknown]
  - Skin weeping [Recovered/Resolved]
  - Peripheral swelling [Unknown]
  - Diarrhoea [Not Recovered/Not Resolved]
  - Cough [Unknown]
  - Ill-defined disorder [Unknown]
  - Joint swelling [Unknown]
  - Dyspnoea [Not Recovered/Not Resolved]
  - Gait disturbance [Not Recovered/Not Resolved]
  - Vomiting [Unknown]
  - Skin haemorrhage [Unknown]
  - Retching [Unknown]
  - Fluid retention [Unknown]
  - Decreased appetite [Not Recovered/Not Resolved]
